FAERS Safety Report 15867428 (Version 1)
Quarter: 2019Q1

REPORT INFORMATION
  Report Type: Spontaneous
  Country: GB (occurrence: GB)
  Receive Date: 20190125
  Receipt Date: 20190125
  Transmission Date: 20190417
  Serious: Yes (Death, Hospitalization, Other)
  Sender: FDA-Public Use
  Company Number: GB-APOTEX-2019AP006746

PATIENT
  Age: 81 Year
  Sex: Female

DRUGS (2)
  1. MYCOPHENOLATE [Suspect]
     Active Substance: MYCOPHENOLIC ACID
     Indication: FACTOR VIII DEFICIENCY
     Dosage: 2 G, PER DAY
     Route: 065
  2. MYCOPHENOLATE [Suspect]
     Active Substance: MYCOPHENOLIC ACID
     Indication: ACQUIRED HAEMOPHILIA
     Dosage: 1 G, PER DAY
     Route: 065

REACTIONS (3)
  - Pneumonia [Fatal]
  - Drug effect incomplete [Fatal]
  - Infection [Unknown]
